FAERS Safety Report 14213352 (Version 1)
Quarter: 2017Q4

REPORT INFORMATION
  Report Type: Spontaneous
  Country: JP (occurrence: JP)
  Receive Date: 20171122
  Receipt Date: 20171122
  Transmission Date: 20180321
  Serious: Yes (Other)
  Sender: FDA-Public Use
  Company Number: JP-SUN PHARMACEUTICAL INDUSTRIES LTD-2017R3-154906

PATIENT
  Age: 42 Year
  Sex: Female

DRUGS (1)
  1. OCTREOTIDE FOR S.C. INJECTION 100?G [SUN] [Suspect]
     Active Substance: OCTREOTIDE
     Indication: PRODUCT USED FOR UNKNOWN INDICATION
     Route: 058

REACTIONS (4)
  - Nausea [Unknown]
  - Cerebral infarction [Unknown]
  - Tachyphylaxis [Unknown]
  - Diarrhoea [Unknown]
